FAERS Safety Report 4868916-X (Version None)
Quarter: 2005Q4

REPORT INFORMATION
  Report Type: 
  Country: None (occurrence: None)
  Receive Date: 20051229
  Receipt Date: 20050914
  Transmission Date: 20060501
  Serious: Yes (Hospitalization, Disabling)
  Sender: FDA-Public Use
  Company Number: US-MERCK-0509USA02233

PATIENT
  Age: 52 Year
  Sex: Female
  Weight: 100 kg

DRUGS (11)
  1. VIOXX [Suspect]
     Indication: ARTHRALGIA
     Route: 048
     Dates: start: 20030401, end: 20041001
  2. NITROFUR MAC [Concomitant]
     Route: 065
  3. OMEPRAZOLE [Concomitant]
     Route: 065
  4. CEFALEXIN (CEPHALORIDINE) [Concomitant]
     Route: 065
  5. ACETAMINOPHEN AND OXYCODONE HYDROCHLORIDE [Concomitant]
     Route: 065
  6. DOXYCYCLINE [Concomitant]
     Route: 065
  7. TEQUIN [Concomitant]
     Route: 065
  8. BIAXIN [Concomitant]
     Route: 065
  9. CARDIZEM [Concomitant]
     Route: 065
  10. DIGITEK [Concomitant]
     Route: 065
  11. FLUCONAZOLE [Concomitant]
     Route: 065

REACTIONS (10)
  - ABDOMINAL PAIN [None]
  - BLOOD CHOLESTEROL INCREASED [None]
  - CARDIAC MURMUR [None]
  - CARDIAC VALVE DISEASE [None]
  - CEREBRAL ARTERIOSCLEROSIS [None]
  - DEMYELINATION [None]
  - NEPHROLITHIASIS [None]
  - NEURALGIA [None]
  - RENAL DISORDER [None]
  - URINARY TRACT INFECTION [None]
